FAERS Safety Report 10801417 (Version 1)
Quarter: 2015Q1

REPORT INFORMATION
  Report Type: Spontaneous
  Country: GB (occurrence: GB)
  Receive Date: 20150217
  Receipt Date: 20150217
  Transmission Date: 20150721
  Serious: Yes (Disabling, Other)
  Sender: FDA-Public Use
  Company Number: GB-ACCORD-028522

PATIENT
  Age: 61 Year
  Sex: Female
  Weight: 55.9 kg

DRUGS (11)
  1. AMLODIPINE [Concomitant]
     Active Substance: AMLODIPINE BESYLATE
  2. SIMVASTATIN. [Concomitant]
     Active Substance: SIMVASTATIN
  3. ALLOPURINOL. [Concomitant]
     Active Substance: ALLOPURINOL
  4. PROGRAF [Concomitant]
     Active Substance: TACROLIMUS\TACROLIMUS ANHYDROUS
  5. MYCOPHENOLIC ACID. [Suspect]
     Active Substance: MYCOPHENOLIC ACID
     Indication: IMMUNOSUPPRESSION
     Dosage: 250MG INCREASING OVER TIME TO MAXIMUM 1250 MG DAILY
     Route: 048
     Dates: start: 20070619
  6. PREDNISOLONE. [Concomitant]
     Active Substance: PREDNISOLONE
  7. ALFACALCIDOL [Concomitant]
     Active Substance: ALFACALCIDOL
  8. BECLOMETASONE [Concomitant]
     Active Substance: BECLOMETHASONE DIPROPIONATE
  9. LANSOPRAZOLE. [Concomitant]
     Active Substance: LANSOPRAZOLE
  10. SALBUTAMOL [Concomitant]
     Active Substance: ALBUTEROL
  11. CALCICHEW [Concomitant]
     Active Substance: CALCIUM CARBONATE

REACTIONS (6)
  - Abnormal loss of weight [Recovering/Resolving]
  - Bronchiectasis [Recovering/Resolving]
  - Blood immunoglobulin M decreased [Unknown]
  - Lower respiratory tract infection [Recovering/Resolving]
  - Condition aggravated [Unknown]
  - Polyp [Unknown]

NARRATIVE: CASE EVENT DATE: 20071001
